FAERS Safety Report 15246730 (Version 2)
Quarter: 2018Q3

REPORT INFORMATION
  Report Type: Spontaneous
  Country: US (occurrence: US)
  Receive Date: 20180806
  Receipt Date: 20180919
  Transmission Date: 20181010
  Serious: Yes (Hospitalization)
  Sender: FDA-Public Use
  Company Number: US-VIFOR (INTERNATIONAL) INC.-VIT-2018-07603

PATIENT
  Age: 80 Year
  Sex: Female
  Weight: 91.5 kg

DRUGS (7)
  1. NEPHRO?VITE [Concomitant]
  2. VELTASSA [Suspect]
     Active Substance: PATIROMER
     Indication: HYPERKALAEMIA
     Route: 048
     Dates: start: 20160429
  3. PRAZOLAMINE [Concomitant]
     Active Substance: .GAMMA.-AMINOBUTYRIC ACID\CARISOPRODOL
  4. FOLIC ACID. [Concomitant]
     Active Substance: FOLIC ACID
  5. RENVELA [Concomitant]
     Active Substance: SEVELAMER CARBONATE
  6. ZOLPIDEM TARTRATE. [Concomitant]
     Active Substance: ZOLPIDEM TARTRATE
  7. VITAMIN D3 [Concomitant]
     Active Substance: CHOLECALCIFEROL

REACTIONS (4)
  - Hyperkalaemia [Recovered/Resolved]
  - Abdominal discomfort [Unknown]
  - Drug dose omission [Unknown]
  - Dizziness [Unknown]

NARRATIVE: CASE EVENT DATE: 20180723
